FAERS Safety Report 4949049-0 (Version None)
Quarter: 2006Q1

REPORT INFORMATION
  Report Type: 
  Country: None (occurrence: None)
  Receive Date: 20060321
  Receipt Date: 20060310
  Transmission Date: 20060701
  Serious: Yes (Death)
  Sender: FDA-Public Use
  Company Number: JP-GLAXOSMITHKLINE-B0415430A

PATIENT
  Age: 4 Year
  Sex: Female
  Weight: 14.6 kg

DRUGS (25)
  1. ALKERAN [Suspect]
     Indication: STEM CELL TRANSPLANT
     Route: 042
     Dates: start: 20030219, end: 20030220
  2. ALKERAN [Suspect]
     Route: 042
     Dates: start: 20030226, end: 20030227
  3. THIOTEPA [Suspect]
     Indication: STEM CELL TRANSPLANT
     Dates: start: 20030219, end: 20030220
  4. THIOTEPA [Suspect]
     Dates: start: 20030226, end: 20030227
  5. GRAN [Concomitant]
     Dates: start: 20030304, end: 20030318
  6. FLUMARIN [Concomitant]
     Route: 042
     Dates: start: 20030221, end: 20030227
  7. DIFLUCAN [Concomitant]
     Route: 042
     Dates: start: 20030221, end: 20030302
  8. DIFLUCAN [Concomitant]
     Route: 042
     Dates: start: 20030328, end: 20030403
  9. VICCLOX [Concomitant]
     Route: 042
     Dates: start: 20030228, end: 20030307
  10. MAXIPIME [Concomitant]
     Route: 042
     Dates: start: 20030227, end: 20030302
  11. MAXIPIME [Concomitant]
     Route: 042
     Dates: start: 20030318, end: 20030328
  12. IMMUNE GLOBULIN INTRAVENOUS (HUMAN) [Concomitant]
     Route: 042
     Dates: start: 20030228, end: 20030302
  13. FOSMICIN S [Concomitant]
     Route: 042
     Dates: start: 20030302, end: 20030305
  14. CARBENIN [Concomitant]
     Route: 042
     Dates: start: 20030302, end: 20030305
  15. FUNGIZONE [Concomitant]
     Dates: start: 20030302, end: 20030318
  16. ANTITHROMBIN III [Concomitant]
     Route: 042
     Dates: start: 20030304, end: 20030304
  17. ANTITHROMBIN III [Concomitant]
     Route: 042
     Dates: start: 20030311, end: 20030311
  18. SULPERAZON [Concomitant]
     Route: 042
     Dates: start: 20030305, end: 20030309
  19. MINOCYCLINE HCL [Concomitant]
     Route: 042
     Dates: start: 20030305, end: 20030309
  20. MODACIN [Concomitant]
     Route: 042
     Dates: start: 20030309, end: 20030318
  21. TOBRACIN [Concomitant]
     Dates: start: 20030309, end: 20030318
  22. FUNGUARD [Concomitant]
     Route: 042
     Dates: start: 20030310, end: 20030403
  23. AZACTAM [Concomitant]
     Dates: start: 20030318, end: 20030328
  24. ADENOSINE [Concomitant]
     Route: 042
     Dates: start: 20030318, end: 20030324
  25. CEFMETAZON [Concomitant]
     Dates: start: 20030328, end: 20030403

REACTIONS (1)
  - SEPTIC SHOCK [None]
